FAERS Safety Report 6540267-7 (Version None)
Quarter: 2010Q1

REPORT INFORMATION
  Report Type: 
  Country: None (occurrence: None)
  Receive Date: 20100115
  Receipt Date: 20100112
  Transmission Date: 20100710
  Serious: Yes (Other)
  Sender: FDA-Public Use
  Company Number: BR-ABBOTT-09P-020-0605806-00

PATIENT
  Sex: Female
  Weight: 55 kg

DRUGS (10)
  1. HUMIRA [Suspect]
     Indication: RHEUMATOID ARTHRITIS
     Route: 058
     Dates: start: 20090101
  2. CHLOROQUINE PHOSPHATE [Concomitant]
     Indication: RHEUMATOID ARTHRITIS
     Route: 048
  3. DICLOFENAC [Concomitant]
     Indication: RHEUMATOID ARTHRITIS
     Route: 048
  4. PARACETAMOL [Concomitant]
     Indication: RHEUMATOID ARTHRITIS
     Route: 048
  5. PREDNISONE [Concomitant]
     Indication: RHEUMATOID ARTHRITIS
     Route: 048
  6. METHOTREXATE [Concomitant]
     Indication: RHEUMATOID ARTHRITIS
     Route: 058
  7. CALCIUM CARBONATE [Concomitant]
     Indication: DRUG USE FOR UNKNOWN INDICATION
     Route: 048
  8. RISEDRONATE SODIUM [Concomitant]
     Indication: RHEUMATOID ARTHRITIS
     Route: 048
  9. AD-TIL [Concomitant]
     Indication: VITAMIN SUPPLEMENTATION
     Route: 048
  10. FOLIC ACID [Concomitant]
     Indication: VITAMIN SUPPLEMENTATION
     Route: 048

REACTIONS (5)
  - BLOOD CHOLESTEROL INCREASED [None]
  - GAIT DISTURBANCE [None]
  - HAEMATOMA [None]
  - HYPERTENSION [None]
  - JOINT DISLOCATION [None]
